FAERS Safety Report 20173428 (Version 1)
Quarter: 2021Q4

REPORT INFORMATION
  Report Type: Spontaneous
  Country: None (occurrence: CN)
  Receive Date: 20211212
  Receipt Date: 20211212
  Transmission Date: 20220303
  Serious: Yes (Hospitalization, Other)
  Sender: FDA-Public Use
  Company Number: CN-Oxford Pharmaceuticals, LLC-2122902

PATIENT
  Age: 56 Year
  Sex: Female

DRUGS (8)
  1. SIMVASTATIN [Suspect]
     Active Substance: SIMVASTATIN
     Indication: Thrombolysis
  2. RIVAROXABAN [Suspect]
     Active Substance: RIVAROXABAN
  3. PRIVIGEN [Concomitant]
     Active Substance: HUMAN IMMUNOGLOBULIN G
  4. METHYLPREDNISOLONE [Concomitant]
     Active Substance: METHYLPREDNISOLONE
  5. METHYLPREDNISOLONE SODIUM SUCCINATE [Concomitant]
     Active Substance: METHYLPREDNISOLONE SODIUM SUCCINATE
  6. TACROLIMUS [Concomitant]
     Active Substance: TACROLIMUS
  7. HEPARIN [Concomitant]
     Active Substance: HEPARIN SODIUM
  8. UROKINASE [Concomitant]
     Active Substance: UROKINASE

REACTIONS (3)
  - Deep vein thrombosis [Recovering/Resolving]
  - Blood creatine phosphokinase increased [Recovered/Resolved]
  - Myoglobin blood increased [Recovered/Resolved]
